FAERS Safety Report 8857586 (Version 1)
Quarter: 2012Q4

REPORT INFORMATION
  Report Type: 
  Country: GB (occurrence: GB)
  Receive Date: 20121024
  Receipt Date: 20121024
  Transmission Date: 20130627
  Serious: Yes (Other)
  Sender: FDA-Public Use
  Company Number: GB-WATSON-2012-15182

PATIENT
  Sex: Female
  Weight: 67.57 kg

DRUGS (11)
  1. KENTERA (WATSON LABORATORIES) [Suspect]
     Indication: NOCTURIA
     Dosage: 2 patches/week
     Route: 062
     Dates: start: 20120816, end: 20120820
  2. KENTERA (WATSON LABORATORIES) [Suspect]
     Indication: POLLAKIURIA
     Dosage: 2 patches/week
     Route: 062
     Dates: start: 201205, end: 201207
  3. KENTERA (WATSON LABORATORIES) [Suspect]
     Indication: MICTURITION URGENCY
  4. AMLODIPINE [Concomitant]
     Indication: PRODUCT USED FOR UNKNOWN INDICATION
     Dosage: 5 mg daily
     Route: 065
  5. OLMESARTAN MEDOXOMIL [Concomitant]
     Indication: PRODUCT USED FOR UNKNOWN INDICATION
     Dosage: 10 mg bid
     Route: 065
  6. BENDROFLUMETHIAZIDE [Concomitant]
     Indication: PRODUCT USED FOR UNKNOWN INDICATION
     Dosage: 2.5 mg daily
     Route: 065
  7. MEBEVERINE HYDROCHLORIDE [Concomitant]
     Indication: PRODUCT USED FOR UNKNOWN INDICATION
     Dosage: 135 mg tds
     Route: 065
  8. CALCIUM CARBONATE [Concomitant]
     Indication: PRODUCT USED FOR UNKNOWN INDICATION
     Dosage: 1.25 g bid
     Route: 065
  9. ASPIRIN [Concomitant]
     Indication: PRODUCT USED FOR UNKNOWN INDICATION
     Dosage: 75 mg daily
     Route: 065
  10. SIMVASTATIN [Concomitant]
     Indication: PRODUCT USED FOR UNKNOWN INDICATION
     Dosage: 40 mg daily
     Route: 065
  11. CALCIFEROL                         /00107901/ [Concomitant]
     Indication: PRODUCT USED FOR UNKNOWN INDICATION
     Dosage: 10 mcg bid
     Route: 065

REACTIONS (1)
  - Application site dermatitis [Recovered/Resolved]
